FAERS Safety Report 8853817 (Version 1)
Quarter: 2012Q4

REPORT INFORMATION
  Report Type: 
  Country: EC (occurrence: EC)
  Receive Date: 20121022
  Receipt Date: 20121022
  Transmission Date: 20130627
  Serious: Yes (Death, Hospitalization, Other)
  Sender: FDA-Public Use
  Company Number: PHHY2012EC093955

PATIENT
  Sex: Male

DRUGS (1)
  1. EXELON PATCH [Suspect]
     Indication: DEMENTIA ALZHEIMER^S TYPE
     Dosage: 9.5 mg\24hrs
     Route: 062
     Dates: start: 201207

REACTIONS (5)
  - Death [Fatal]
  - Coma [Unknown]
  - Convulsion [Unknown]
  - Influenza [Unknown]
  - Pyrexia [Unknown]
